FAERS Safety Report 18944106 (Version 2)
Quarter: 2021Q1

REPORT INFORMATION
  Report Type: Spontaneous
  Country: EG (occurrence: EG)
  Receive Date: 20210226
  Receipt Date: 20210315
  Transmission Date: 20210420
  Serious: Yes (Death, Other)
  Sender: FDA-Public Use
  Company Number: EG-SA-2021SA065367

PATIENT
  Age: 4 Year
  Sex: Male
  Weight: 9 kg

DRUGS (2)
  1. CEREZYME [Suspect]
     Active Substance: IMIGLUCERASE
  2. CEREZYME [Suspect]
     Active Substance: IMIGLUCERASE
     Indication: GAUCHER^S DISEASE TYPE III
     Dosage: 60 U/KG; QOW
     Route: 041
     Dates: start: 20190925, end: 20210214

REACTIONS (14)
  - Pyrexia [Recovering/Resolving]
  - Tachypnoea [Recovering/Resolving]
  - Wheezing [Unknown]
  - Lower respiratory tract infection [Fatal]
  - Pulmonary oedema [Fatal]
  - Cyanosis [Fatal]
  - Pneumonia aspiration [Fatal]
  - Respiratory arrest [Fatal]
  - Choking [Fatal]
  - Aspiration [Fatal]
  - Oxygen saturation abnormal [Recovering/Resolving]
  - Pneumonia viral [Unknown]
  - Appetite disorder [Recovering/Resolving]
  - Cough [Recovering/Resolving]

NARRATIVE: CASE EVENT DATE: 202102
